FAERS Safety Report 5782052-X (Version None)
Quarter: 2008Q2

REPORT INFORMATION
  Report Type: 
  Country: None (occurrence: None)
  Receive Date: 20080618
  Receipt Date: 20080603
  Transmission Date: 20081010
  Serious: Yes (Other)
  Sender: FDA-Public Use
  Company Number: CLOF-1000114

PATIENT
  Age: 30 Year
  Sex: Male

DRUGS (3)
  1. CLOFARABINE (CLOFARABINE) SOLUTION FOR INFUSION [Suspect]
     Indication: ACUTE LEUKAEMIA
     Dosage: 40 MG, QDX5, INTRAVENOUS
     Route: 042
  2. CYCLOPHOSPHAMIDE [Suspect]
     Indication: ACUTE LEUKAEMIA
  3. ETOPOSIDE [Suspect]
     Indication: ACUTE LEUKAEMIA

REACTIONS (3)
  - CEREBRAL HAEMORRHAGE [None]
  - CHOLESTASIS [None]
  - HEPATITIS [None]
